FAERS Safety Report 22350479 (Version 2)
Quarter: 2023Q2

REPORT INFORMATION
  Report Type: Spontaneous
  Country: US (occurrence: US)
  Receive Date: 20230522
  Receipt Date: 20230605
  Transmission Date: 20230722
  Serious: No
  Sender: FDA-Public Use
  Company Number: US-ABBVIE-4759588

PATIENT
  Age: 49 Year
  Sex: Female

DRUGS (4)
  1. HUMIRA [Suspect]
     Active Substance: ADALIMUMAB
     Indication: Synovitis
     Route: 057
     Dates: start: 20230310
  2. HUMIRA [Suspect]
     Active Substance: ADALIMUMAB
     Indication: Acne
  3. HUMIRA [Suspect]
     Active Substance: ADALIMUMAB
     Indication: Osteitis
  4. HUMIRA [Suspect]
     Active Substance: ADALIMUMAB
     Indication: Bone hypertrophy

REACTIONS (3)
  - Off label use [Not Recovered/Not Resolved]
  - Gait disturbance [Not Recovered/Not Resolved]
  - Pain [Unknown]

NARRATIVE: CASE EVENT DATE: 20230310
